APPROVED DRUG PRODUCT: TRIAMCINOLONE
Active Ingredient: TRIAMCINOLONE
Strength: 2MG
Dosage Form/Route: TABLET;ORAL
Application: A084708 | Product #001
Applicant: ROXANE LABORATORIES INC
Approved: Approved Prior to Jan 1, 1982 | RLD: No | RS: No | Type: DISCN